FAERS Safety Report 13182493 (Version 6)
Quarter: 2017Q4

REPORT INFORMATION
  Report Type: Spontaneous
  Country: US (occurrence: US)
  Receive Date: 20170203
  Receipt Date: 20171201
  Transmission Date: 20180320
  Serious: No
  Sender: FDA-Public Use
  Company Number: US-PFIZER INC-2017042388

PATIENT
  Age: 56 Year
  Sex: Female

DRUGS (17)
  1. CLONAZEPAM. [Concomitant]
     Active Substance: CLONAZEPAM
     Indication: GENERALISED TONIC-CLONIC SEIZURE
     Dosage: UNK
     Dates: start: 2001
  2. CLONAZEPAM. [Concomitant]
     Active Substance: CLONAZEPAM
     Indication: ATONIC SEIZURES
     Dosage: 2 MG, 2X/DAY (AM + PM)
     Dates: start: 2013
  3. LAMICTAL [Concomitant]
     Active Substance: LAMOTRIGINE
     Indication: ATONIC SEIZURES
     Dosage: DAILY (INCREASED DOSE)
     Dates: start: 2014
  4. TIZANIDINE. [Concomitant]
     Active Substance: TIZANIDINE
     Indication: MUSCLE SPASMS
  5. SKELAXIN [Suspect]
     Active Substance: METAXALONE
     Indication: PAIN IN EXTREMITY
     Dosage: 800 MG, 2X/DAY (1 CAPSULE 2X A DAY;8 HOURS APART)
     Route: 048
     Dates: start: 201610
  6. SKELAXIN [Suspect]
     Active Substance: METAXALONE
     Indication: SPINAL CORD COMPRESSION
  7. CLONAZEPAM. [Concomitant]
     Active Substance: CLONAZEPAM
     Indication: SEIZURE
  8. LAMICTAL [Concomitant]
     Active Substance: LAMOTRIGINE
     Indication: SEIZURE
     Dosage: 100 MG, 2X/DAY
     Dates: start: 201610
  9. TIZANIDINE. [Concomitant]
     Active Substance: TIZANIDINE
     Indication: SLEEP DISORDER
     Dosage: 8 MG, 1X/DAY(4 MG TWO TABLETS AT NIGHT, TAKEN AT NIGHT BEFORE BED)
     Dates: start: 2016
  10. SKELAXIN [Suspect]
     Active Substance: METAXALONE
     Indication: MUSCULOSKELETAL PAIN
  11. LAMICTAL [Concomitant]
     Active Substance: LAMOTRIGINE
     Indication: GENERALISED TONIC-CLONIC SEIZURE
     Dosage: UNK
     Dates: start: 2010
  12. LAMICTAL [Concomitant]
     Active Substance: LAMOTRIGINE
     Indication: PARTIAL SEIZURES
     Dosage: 50 MG
  13. SKELAXIN [Suspect]
     Active Substance: METAXALONE
     Indication: MUSCLE SPASMS
  14. CLONAZEPAM. [Concomitant]
     Active Substance: CLONAZEPAM
     Indication: PARTIAL SEIZURES
     Dosage: 2 MG, 3X/DAY(TAPERING TO 4 MG DAILY)
  15. SKELAXIN [Suspect]
     Active Substance: METAXALONE
     Indication: SPINAL CORD DISORDER
     Dosage: UNK
     Dates: start: 2012, end: 2014
  16. SKELAXIN [Suspect]
     Active Substance: METAXALONE
     Indication: SPINAL COLUMN STENOSIS
     Dosage: 800 MG, 1X/DAY
     Route: 048
  17. TIZANIDINE. [Concomitant]
     Active Substance: TIZANIDINE
     Indication: MUSCLE RELAXANT THERAPY
     Dosage: 400 MG, UNK

REACTIONS (2)
  - Muscle spasms [Unknown]
  - Intentional product misuse [Unknown]

NARRATIVE: CASE EVENT DATE: 201706
